FAERS Safety Report 5187879-3 (Version None)
Quarter: 2006Q4

REPORT INFORMATION
  Report Type: 
  Country: None (occurrence: None)
  Receive Date: 20061221
  Receipt Date: 20061117
  Transmission Date: 20070319
  Serious: No
  Sender: FDA-Public Use
  Company Number: US-GLAXOSMITHKLINE-A0627940A

PATIENT
  Sex: Male

DRUGS (4)
  1. AVANDARYL [Suspect]
     Route: 048
     Dates: start: 20061115
  2. LISINOPRIL [Concomitant]
  3. ADALAT [Concomitant]
  4. STIBATIN [Concomitant]

REACTIONS (1)
  - DIZZINESS [None]
